FAERS Safety Report 4527217-X (Version None)
Quarter: 2004Q4

REPORT INFORMATION
  Report Type: 
  Country: None (occurrence: None)
  Receive Date: 20041215
  Receipt Date: 20041118
  Transmission Date: 20050328
  Serious: Yes (Hospitalization)
  Sender: FDA-Public Use
  Company Number: PHHO2004RU16337

PATIENT
  Age: 72 Year
  Sex: Female
  Weight: 93 kg

DRUGS (1)
  1. MIACALCIC VS PLACEBO [Suspect]
     Indication: FOREARM FRACTURE
     Dosage: UNK, UNK
     Route: 045
     Dates: start: 20040530, end: 20041124

REACTIONS (5)
  - BLOOD GLUCOSE INCREASED [None]
  - CONCOMITANT DISEASE PROGRESSION [None]
  - DIABETES MELLITUS [None]
  - DIABETES MELLITUS NON-INSULIN-DEPENDENT [None]
  - DISEASE PROGRESSION [None]
